FAERS Safety Report 7514580-0 (Version None)
Quarter: 2011Q2

REPORT INFORMATION
  Report Type: 
  Country: None (occurrence: None)
  Receive Date: 20110601
  Receipt Date: 20110110
  Transmission Date: 20111010
  Serious: No
  Sender: FDA-Public Use
  Company Number: US-BAYER-2011-003502

PATIENT
  Sex: Female

DRUGS (1)
  1. YASMIN [Suspect]
     Indication: PRODUCT USED FOR UNKNOWN INDICATION
     Dosage: UNK
     Route: 048
     Dates: start: 20070101, end: 20080201

REACTIONS (4)
  - ANXIETY [None]
  - PAIN [None]
  - EMOTIONAL DISTRESS [None]
  - INJURY [None]
